FAERS Safety Report 5148673-2 (Version None)
Quarter: 2006Q4

REPORT INFORMATION
  Report Type: 
  Country: None (occurrence: None)
  Receive Date: 20061106
  Receipt Date: 20060728
  Transmission Date: 20070319
  Serious: Yes (Other)
  Sender: FDA-Public Use
  Company Number: RB-3520-2006

PATIENT
  Age: 57 Year
  Sex: Female

DRUGS (20)
  1. LEPETAN (BUPRENORPHINE HYDROCHLORIDE) [Suspect]
     Indication: DRUG USE FOR UNKNOWN INDICATION
     Dosage: INJECTION; 0.6 - 0.8 MG DAILY
     Route: 030
  2. AMINOPHYLLIN [Concomitant]
  3. CANDESARTAN CILEXETIL [Concomitant]
  4. CODEINE PHOSPHATE (CODEINE PHOSPHATE) [Concomitant]
  5. LEVOFLOXACIN [Concomitant]
  6. FENOTEROL HYDROBROMIDE (FENOTEROL HYDROBROMIDE) [Concomitant]
  7. FLUTICASONE PROPIONATE [Concomitant]
  8. BROMHEXINE HYDROCHLORIDE [Concomitant]
  9. AMLODIPINE BESYLATE [Concomitant]
  10. PREDNISOLONE [Concomitant]
  11. RANITIDINE HYDROCHLORIDE [Concomitant]
  12. METOCLOPRAMIDE [Concomitant]
  13. CLENBUTEROL HYDROCHLORIDE [Concomitant]
  14. ZALTROPROFEN [Concomitant]
  15. PRANLUKAST [Concomitant]
  16. ZOPICLONE [Concomitant]
  17. DEXTROMETHORPHAN HYDROBROMIDE [Concomitant]
  18. THEOPHYLLINE [Concomitant]
  19. FLUFENAMIC ACID [Concomitant]
  20. COLD RELIEF [Concomitant]

REACTIONS (3)
  - ANXIETY [None]
  - CHEST DISCOMFORT [None]
  - DRUG DEPENDENCE [None]
